FAERS Safety Report 11659553 (Version 4)
Quarter: 2016Q1

REPORT INFORMATION
  Report Type: Spontaneous
  Country: JP (occurrence: JP)
  Receive Date: 20151026
  Receipt Date: 20160128
  Transmission Date: 20160525
  Serious: Yes (Other)
  Sender: FDA-Public Use
  Company Number: JP-ACTAVIS-2015-20557

PATIENT
  Age: 57 Year
  Sex: Female

DRUGS (4)
  1. NEDAPLATIN [Suspect]
     Active Substance: NEDAPLATIN
     Indication: OVARIAN CANCER STAGE IV
     Dosage: 80 MG/M2, 1/ THREE WEEKS (ON DAY 1)
     Route: 065
  2. PACLITAXEL. [Concomitant]
     Active Substance: PACLITAXEL
     Indication: OVARIAN CANCER STAGE IV
     Dosage: 175 MG/M2, CYCLICAL, 6 CYCLES
     Route: 065
  3. CARBOPLATIN (UNKNOWN) [Suspect]
     Active Substance: CARBOPLATIN
     Indication: OVARIAN CANCER STAGE IV
     Dosage: UNK UNK, 1/ THREE WEEKS
     Route: 065
  4. GEMCITABINE [Suspect]
     Active Substance: GEMCITABINE\GEMCITABINE HYDROCHLORIDE
     Indication: OVARIAN CANCER STAGE IV
     Dosage: 1000 MG/M2, 1/ THREE WEEKS (ON DAY 1 AND 8)
     Route: 065

REACTIONS (5)
  - Cytopenia [Recovered/Resolved]
  - Leukopenia [Recovering/Resolving]
  - Hypersensitivity [Unknown]
  - Dermatitis allergic [Recovering/Resolving]
  - Anaemia [Recovering/Resolving]
